FAERS Safety Report 16407848 (Version 2)
Quarter: 2019Q3

REPORT INFORMATION
  Report Type: Report from Study
  Country: None (occurrence: US)
  Receive Date: 20190610
  Receipt Date: 20190722
  Transmission Date: 20191004
  Serious: Yes (Other)
  Sender: FDA-Public Use
  Company Number: US-ABBVIE-19K-163-2649404-00

PATIENT
  Age: 50 Year
  Sex: Male

DRUGS (2)
  1. HUMIRA [Suspect]
     Active Substance: ADALIMUMAB
     Indication: CROHN^S DISEASE
     Route: 058
  2. HUMIRA [Suspect]
     Active Substance: ADALIMUMAB
     Dosage: INCREASED DOSE
     Route: 058

REACTIONS (11)
  - Acne [Unknown]
  - Pyoderma gangrenosum [Unknown]
  - Furuncle [Unknown]
  - Rectal discharge [Not Recovered/Not Resolved]
  - Renal disorder [Unknown]
  - Crohn^s disease [Not Recovered/Not Resolved]
  - Blood iron decreased [Unknown]
  - Abdominal pain upper [Unknown]
  - Dermatitis acneiform [Unknown]
  - Nasopharyngitis [Unknown]
  - Renal mass [Unknown]

NARRATIVE: CASE EVENT DATE: 2014
